FAERS Safety Report 24700718 (Version 2)
Quarter: 2024Q4

REPORT INFORMATION
  Report Type: Spontaneous
  Country: US (occurrence: US)
  Receive Date: 20241205
  Receipt Date: 20241205
  Transmission Date: 20250115
  Serious: Yes (Other)
  Sender: ROCHE
  Company Number: US-ROCHE-10000143956

PATIENT
  Age: 87 Year
  Sex: Female

DRUGS (5)
  1. TAMIFLU [Suspect]
     Active Substance: OSELTAMIVIR PHOSPHATE
     Indication: Rheumatoid arthritis
     Route: 065
  2. TAMIFLU [Suspect]
     Active Substance: OSELTAMIVIR PHOSPHATE
     Indication: Osteoporosis
  3. XELJANZ XR [Suspect]
     Active Substance: TOFACITINIB CITRATE
     Indication: Rheumatoid arthritis
     Route: 065
  4. XELJANZ XR [Suspect]
     Active Substance: TOFACITINIB CITRATE
     Indication: Osteoporosis
  5. CORTISONE [Concomitant]
     Active Substance: CORTISONE

REACTIONS (9)
  - Joint fluid drainage [Unknown]
  - Drug ineffective [Unknown]
  - Dysstasia [Unknown]
  - Influenza [Unknown]
  - Malaise [Unknown]
  - Confusional state [Unknown]
  - Fatigue [Unknown]
  - Limb injury [Unknown]
  - Gait disturbance [Not Recovered/Not Resolved]
